FAERS Safety Report 8561480 (Version 4)
Quarter: 2013Q1

REPORT INFORMATION
  Report Type: Spontaneous
  Country: US (occurrence: US)
  Receive Date: 20120515
  Receipt Date: 20130121
  Transmission Date: 20140127
  Serious: Yes (Other)
  Sender: FDA-Public Use
  Company Number: US-BIOGENIDEC-2012BI016290

PATIENT
  Age: 45 Year
  Sex: Female

DRUGS (5)
  1. TYSABRI [Suspect]
     Indication: MULTIPLE SCLEROSIS
     Route: 042
     Dates: start: 20090608, end: 20120607
  2. VESICARE [Concomitant]
  3. RITALIN [Concomitant]
  4. ASPIRIN [Concomitant]
  5. SOLU-MEDROL [Concomitant]
     Route: 042
     Dates: start: 201007, end: 201007

REACTIONS (1)
  - Desmoid tumour [Unknown]
